FAERS Safety Report 5894020-8 (Version None)
Quarter: 2008Q3

REPORT INFORMATION
  Report Type: 
  Country: None (occurrence: None)
  Receive Date: 20080923
  Receipt Date: 20080623
  Transmission Date: 20090109
  Serious: No
  Sender: FDA-Public Use
  Company Number: US-B.I. PHARMACEUTICALS,INC./RIDGEFIELD-2008-BP-09784BP

PATIENT

DRUGS (3)
  1. MICARDIS HCT [Suspect]
     Indication: HYPERTENSION
  2. METFORMAN [Concomitant]
  3. JANUVIA [Concomitant]

REACTIONS (1)
  - BLOOD GLUCOSE INCREASED [None]
